FAERS Safety Report 4279280-1 (Version None)
Quarter: 2004Q1

REPORT INFORMATION
  Report Type: 
  Country: None (occurrence: None)
  Receive Date: 20040127
  Receipt Date: 20040123
  Transmission Date: 20041129
  Serious: Yes (Hospitalization)
  Sender: FDA-Public Use
  Company Number: FR-BRISTOL-MYERS SQUIBB COMPANY-12485074

PATIENT
  Age: 35 Year
  Sex: Male

DRUGS (3)
  1. VIDEX [Suspect]
     Route: 048
     Dates: start: 20031022
  2. SUSTIVA [Suspect]
     Route: 048
     Dates: start: 20031022
  3. EPIVIR [Suspect]
     Route: 048
     Dates: start: 20031022

REACTIONS (3)
  - HAEMOLYTIC ANAEMIA [None]
  - PROTEINURIA [None]
  - RENAL FAILURE ACUTE [None]
